FAERS Safety Report 18546941 (Version 1)
Quarter: 2020Q4

REPORT INFORMATION
  Report Type: Spontaneous
  Country: US (occurrence: US)
  Receive Date: 20201125
  Receipt Date: 20201125
  Transmission Date: 20210114
  Serious: No
  Sender: FDA-Public Use
  Company Number: US-JNJFOC-20201044463

PATIENT
  Sex: Male

DRUGS (2)
  1. ERDAFITINIB. [Suspect]
     Active Substance: ERDAFITINIB
     Route: 048
  2. ERDAFITINIB. [Suspect]
     Active Substance: ERDAFITINIB
     Indication: PRODUCT USED FOR UNKNOWN INDICATION
     Route: 048

REACTIONS (2)
  - Vision blurred [Recovering/Resolving]
  - Onychomadesis [Recovering/Resolving]

NARRATIVE: CASE EVENT DATE: 20201026
